FAERS Safety Report 23712255 (Version 3)
Quarter: 2024Q4

REPORT INFORMATION
  Report Type: Report from Study
  Country: JP (occurrence: JP)
  Receive Date: 20240405
  Receipt Date: 20241129
  Transmission Date: 20250115
  Serious: Yes (Death, Other)
  Sender: GENMAB
  Company Number: JP-GENMAB-2024-01070

PATIENT
  Age: 61 Year
  Sex: Male
  Weight: 67.6 kg

DRUGS (6)
  1. EPKINLY [Suspect]
     Active Substance: EPCORITAMAB-BYSP
     Indication: Diffuse large B-cell lymphoma refractory
     Dosage: 0.16 MILLIGRAM, SINGLE
     Route: 065
     Dates: start: 20240201, end: 20240201
  2. EPKINLY [Suspect]
     Active Substance: EPCORITAMAB-BYSP
     Dosage: 0.8 MILLIGRAM, SINGLE
     Route: 065
     Dates: start: 20240208, end: 20240208
  3. EPKINLY [Suspect]
     Active Substance: EPCORITAMAB-BYSP
     Dosage: 48 MILLIGRAM
     Route: 065
     Dates: start: 20240215, end: 20240322
  4. CORTICOTROPIN [Concomitant]
     Active Substance: CORTICOTROPIN
     Indication: Prophylaxis
     Dosage: UNK, AT THE TIME OF ADMINISTRATION OF EPKINLY, FROM THE FIRST TO THE FOURTH ADMINISTRATION IN CYCLE
     Dates: start: 202402, end: 202402
  5. ANTIHISTAMINES NOS [Concomitant]
     Active Substance: ANTIHISTAMINES NOS
     Indication: Prophylaxis
     Dosage: UNK, AT THE TIME OF ADMINISTRATION OF EPKINLY, FROM THE FIRST TO THE FOURTH ADMINISTRATION IN CYCLE
     Dates: start: 202402, end: 202402
  6. UNSPECIFIED INGREDIENT [Concomitant]
     Active Substance: UNSPECIFIED INGREDIENT
     Indication: Prophylaxis
     Dosage: UNK, AT THE TIME OF ADMINISTRATION OF EPKINLY, FROM THE FIRST TO THE FOURTH ADMINISTRATION IN CYCLE
     Dates: start: 202402, end: 202402

REACTIONS (1)
  - Diffuse large B-cell lymphoma refractory [Fatal]

NARRATIVE: CASE EVENT DATE: 20240328
